FAERS Safety Report 6930281-1 (Version None)
Quarter: 2010Q3

REPORT INFORMATION
  Report Type: 
  Country: None (occurrence: None)
  Receive Date: 20100818
  Receipt Date: 20100809
  Transmission Date: 20110219
  Serious: Yes (Life-Threatening)
  Sender: FDA-Public Use
  Company Number: DE-SANOFI-AVENTIS-2010SA043072

PATIENT
  Age: 76 Year
  Sex: Male
  Weight: 88 kg

DRUGS (6)
  1. MULTAQ [Suspect]
     Route: 048
     Dates: start: 20100415, end: 20100618
  2. RAMIPRIL [Concomitant]
     Indication: HYPERTENSION
     Route: 048
     Dates: start: 20040505
  3. ATACAND HCT [Concomitant]
     Indication: HYPERTENSION
     Dosage: DOSAGE: 1/2 TABLET OF STRENGTH 32/25 MG
     Route: 048
     Dates: start: 20100223
  4. SIMVASTATIN [Concomitant]
     Route: 048
     Dates: start: 20040505
  5. ACETYLSALICYLIC ACID SRT [Concomitant]
     Route: 048
     Dates: start: 20090421
  6. ACETYLSALICYLIC ACID SRT [Concomitant]
     Indication: ANTICOAGULANT THERAPY
     Route: 048
     Dates: start: 20090421

REACTIONS (5)
  - ALANINE AMINOTRANSFERASE INCREASED [None]
  - BLOOD ALKALINE PHOSPHATASE INCREASED [None]
  - CONDITION AGGRAVATED [None]
  - GAMMA-GLUTAMYLTRANSFERASE INCREASED [None]
  - LIVER FUNCTION TEST ABNORMAL [None]
